FAERS Safety Report 7090808-9 (Version None)
Quarter: 2010Q4

REPORT INFORMATION
  Report Type: 
  Country: None (occurrence: None)
  Receive Date: 20101012
  Receipt Date: 20091009
  Transmission Date: 20110411
  Serious: Yes (Hospitalization)
  Sender: FDA-Public Use
  Company Number: 1000009395

PATIENT
  Age: 81 Year
  Sex: Female

DRUGS (12)
  1. LEXAPRO [Suspect]
     Indication: GENERALISED ANXIETY DISORDER
     Dosage: SEE IMAGE
     Route: 048
     Dates: start: 20090801, end: 20090901
  2. LEXAPRO [Suspect]
     Indication: GENERALISED ANXIETY DISORDER
     Dosage: SEE IMAGE
     Route: 048
     Dates: start: 20090901, end: 20090924
  3. LEXAPRO [Suspect]
     Indication: GENERALISED ANXIETY DISORDER
     Dosage: SEE IMAGE
     Route: 048
     Dates: start: 20090925
  4. XANAX [Concomitant]
  5. TOPROL-XL [Concomitant]
  6. ASPIRIN [Concomitant]
  7. CARDIZEM [Concomitant]
  8. COLACE [Concomitant]
  9. MIRALAX [Concomitant]
  10. SLOW-MAG [Concomitant]
  11. CENTRUM [Concomitant]
  12. ASACOL [Concomitant]

REACTIONS (3)
  - HYPOAESTHESIA [None]
  - HYPOAESTHESIA ORAL [None]
  - RASH [None]
